FAERS Safety Report 4850208-6 (Version None)
Quarter: 2005Q4

REPORT INFORMATION
  Report Type: 
  Country: None (occurrence: None)
  Receive Date: 20051123
  Receipt Date: 20051010
  Transmission Date: 20060501
  Serious: No
  Sender: FDA-Public Use
  Company Number: 218457

PATIENT
  Sex: Male

DRUGS (1)
  1. RAPTIVA [Suspect]
     Route: 065
     Dates: start: 20050928

REACTIONS (3)
  - BLOOD GLUCOSE INCREASED [None]
  - MICTURITION DISORDER [None]
  - THIRST [None]
